FAERS Safety Report 9512038 (Version 1)
Quarter: 2013Q3

REPORT INFORMATION
  Report Type: Spontaneous
  Country: US (occurrence: US)
  Receive Date: 20130910
  Receipt Date: 20130910
  Transmission Date: 20140515
  Serious: Yes (Other)
  Sender: FDA-Public Use
  Company Number: US-BAYER-2013-107705

PATIENT
  Sex: Female
  Weight: 83.9 kg

DRUGS (8)
  1. BETASERON [Suspect]
     Dosage: 0.25 MG, UNK
     Route: 058
  2. COUMADIN [Concomitant]
     Dosage: 4 MG, UNK
  3. VITAMIN B12 [Concomitant]
     Dosage: 1000 ?G, UNK
  4. PREVACID [Concomitant]
     Dosage: 30 MG, UNK
  5. DARVON-N [Concomitant]
     Dosage: 100 MG, UNK
  6. NEURONTIN [Concomitant]
     Dosage: 100 MG, UNK
  7. CELEXA [Concomitant]
     Dosage: 40 MG, UNK
  8. ZOCOR [Concomitant]
     Dosage: 20 MG, UNK

REACTIONS (3)
  - Injection site rash [Recovering/Resolving]
  - Hernia [Recovering/Resolving]
  - Fistula [Recovering/Resolving]
